FAERS Safety Report 23109020 (Version 1)
Quarter: 2023Q4

REPORT INFORMATION
  Report Type: Spontaneous
  Country: US (occurrence: US)
  Receive Date: 20231026
  Receipt Date: 20231026
  Transmission Date: 20240110
  Serious: Yes (Life-Threatening, Hospitalization, Other)
  Sender: FDA-Public Use
  Company Number: US-MLMSERVICE-20231005-4587863-1, 10.1016/j.chest.2023.07.428

PATIENT

DRUGS (13)
  1. PROPOFOL [Suspect]
     Active Substance: PROPOFOL
     Indication: Withdrawal syndrome
     Dosage: DAILY CONTINUOUS
     Route: 065
  2. PROPOFOL [Suspect]
     Active Substance: PROPOFOL
     Indication: Alcohol withdrawal syndrome
  3. FENTANYL [Concomitant]
     Active Substance: FENTANYL\FENTANYL CITRATE
     Indication: Sedative therapy
     Dosage: CONTINUOUS
     Route: 065
  4. FENTANYL [Concomitant]
     Active Substance: FENTANYL\FENTANYL CITRATE
     Indication: Alcohol withdrawal syndrome
  5. FENTANYL [Concomitant]
     Active Substance: FENTANYL\FENTANYL CITRATE
     Indication: Withdrawal syndrome
  6. HALOPERIDOL [Concomitant]
     Active Substance: HALOPERIDOL
     Indication: Alcohol withdrawal syndrome
     Dosage: UNK
     Route: 065
  7. KETAMINE [Concomitant]
     Active Substance: KETAMINE
     Indication: Alcohol withdrawal syndrome
     Dosage: CONTINUOUS
     Route: 065
  8. KETAMINE [Concomitant]
     Active Substance: KETAMINE
     Indication: Sedative therapy
  9. KETAMINE [Concomitant]
     Active Substance: KETAMINE
     Indication: Withdrawal syndrome
  10. LORAZEPAM [Concomitant]
     Active Substance: LORAZEPAM
     Indication: Alcohol withdrawal syndrome
     Dosage: UNK
     Route: 065
  11. MIDAZOLAM [Concomitant]
     Active Substance: MIDAZOLAM
     Indication: Alcohol withdrawal syndrome
     Dosage: UNK
     Route: 065
  12. MIDAZOLAM [Concomitant]
     Active Substance: MIDAZOLAM
     Indication: Sedative therapy
  13. QUETIAPINE [Concomitant]
     Active Substance: QUETIAPINE
     Indication: Withdrawal syndrome
     Dosage: CONTINUOUS
     Route: 065

REACTIONS (6)
  - Propofol infusion syndrome [Unknown]
  - Disseminated intravascular coagulation [Unknown]
  - Brain injury [Unknown]
  - Multiple organ dysfunction syndrome [Unknown]
  - Haemodynamic instability [Unknown]
  - Acute respiratory failure [Unknown]
